FAERS Safety Report 4594448-2 (Version None)
Quarter: 2005Q1

REPORT INFORMATION
  Report Type: 
  Country: None (occurrence: None)
  Receive Date: 20050301
  Receipt Date: 20040302
  Transmission Date: 20050727
  Serious: No
  Sender: FDA-Public Use
  Company Number: US-GLAXOSMITHKLINE-A0500865A

PATIENT
  Age: 20 Year
  Sex: Male

DRUGS (3)
  1. VALTREX [Suspect]
     Indication: ILL-DEFINED DISORDER
     Route: 048
     Dates: start: 20040201
  2. DIAZEPAM [Concomitant]
  3. HERBAL MEDICATION [Concomitant]
     Route: 065

REACTIONS (2)
  - MUSCLE TIGHTNESS [None]
  - PSYCHOMOTOR HYPERACTIVITY [None]
